FAERS Safety Report 18916383 (Version 3)
Quarter: 2021Q1

REPORT INFORMATION
  Report Type: Report from Study
  Country: IL (occurrence: IL)
  Receive Date: 20210219
  Receipt Date: 20210319
  Transmission Date: 20210420
  Serious: Yes (Other)
  Sender: FDA-Public Use
  Company Number: NVSC2021IL036066

PATIENT
  Age: 60 Year
  Sex: Female

DRUGS (1)
  1. COSENTYX [Suspect]
     Active Substance: SECUKINUMAB
     Indication: PSORIATIC ARTHROPATHY
     Dosage: 150 MG, QW
     Route: 058
     Dates: start: 20210204

REACTIONS (4)
  - Wound infection [Not Recovered/Not Resolved]
  - Asthenia [Not Recovered/Not Resolved]
  - Blood oestrogen decreased [Not Recovered/Not Resolved]
  - Vulvovaginal dryness [Not Recovered/Not Resolved]

NARRATIVE: CASE EVENT DATE: 20210206
